FAERS Safety Report 5214528-8 (Version None)
Quarter: 2006Q4

REPORT INFORMATION
  Report Type: 
  Country: None (occurrence: None)
  Receive Date: 20061113
  Receipt Date: 20060811
  Transmission Date: 20070319
  Serious: Yes (Hospitalization)
  Sender: FDA-Public Use
  Company Number: MSER20060016

PATIENT
  Age: 77 Year
  Sex: Female

DRUGS (8)
  1. MORPHINE [Suspect]
     Indication: DYSPNOEA
     Dosage: 30 MG ONCE PO
     Route: 048
  2. MORPHINE [Suspect]
     Indication: DYSPNOEA
     Dosage: 5 MG TWICE SL
  3. LORAZEPAM [Concomitant]
  4. FUROSEMIDE [Concomitant]
  5. DIGOXIN [Concomitant]
  6. METOLAZONE [Concomitant]
  7. SPIRONOLACTONE [Concomitant]
  8. POTASSIUM ACETATE [Concomitant]

REACTIONS (1)
  - DELUSION OF REPLACEMENT [None]
